FAERS Safety Report 9146517 (Version 1)
Quarter: 2013Q1

REPORT INFORMATION
  Report Type: Spontaneous
  Country: US (occurrence: US)
  Receive Date: 20130307
  Receipt Date: 20130307
  Transmission Date: 20140127
  Serious: No
  Sender: FDA-Public Use
  Company Number: US-GLAXOSMITHKLINE-A0991462A

PATIENT
  Sex: Male

DRUGS (18)
  1. REQUIP [Suspect]
     Indication: RESTLESS LEGS SYNDROME
     Dosage: 5MG PER DAY
     Route: 048
     Dates: start: 201205
  2. HORIZANT [Suspect]
     Indication: RESTLESS LEGS SYNDROME
     Route: 048
     Dates: start: 201205
  3. ROPINIROLE [Suspect]
     Dates: start: 201205
  4. OXYBUTYNIN [Concomitant]
  5. FUROSEMIDE [Concomitant]
  6. ROSUVASTATIN [Concomitant]
  7. METOPROLOL [Concomitant]
  8. TERAZOSIN [Concomitant]
  9. ROPINIROLE [Concomitant]
  10. OXYCODONE [Concomitant]
  11. PLAVIX [Concomitant]
  12. UNKNOWN MEDICATION [Concomitant]
  13. LEVOTHYROXINE [Concomitant]
  14. CLOPIDOGREL [Concomitant]
  15. OMEPRAZOLE [Concomitant]
  16. FLUOXETINE [Concomitant]
  17. OMEPRAZOLE [Concomitant]
  18. CLOPIDOGREL BISULFATE [Concomitant]

REACTIONS (3)
  - Somnolence [Not Recovered/Not Resolved]
  - Drug ineffective [Unknown]
  - Neuralgia [Unknown]
